FAERS Safety Report 6024667-X (Version None)
Quarter: 2008Q4

REPORT INFORMATION
  Report Type: 
  Country: None (occurrence: None)
  Receive Date: 20081231
  Receipt Date: 20081226
  Transmission Date: 20090506
  Serious: Yes (Hospitalization, Other)
  Sender: FDA-Public Use
  Company Number: CA-BRISTOL-MYERS SQUIBB COMPANY-14457303

PATIENT
  Age: 44 Year
  Sex: Male

DRUGS (10)
  1. ATAZANAVIR [Suspect]
     Indication: HIV INFECTION
  2. CLONAZEPAM [Interacting]
     Indication: PSYCHOTIC DISORDER
  3. RALTEGRAVIR [Interacting]
     Indication: HIV INFECTION
     Dates: start: 20070620
  4. TENOFOVIR [Suspect]
     Indication: HIV INFECTION
  5. EMTRICITABINE [Suspect]
     Indication: HIV INFECTION
  6. RITONAVIR [Suspect]
     Indication: HIV INFECTION
  7. BUPROPION HCL [Interacting]
     Indication: PSYCHOTIC DISORDER
  8. CITALOPRAM [Interacting]
     Indication: PSYCHOTIC DISORDER
  9. RISPERIDONE [Interacting]
     Indication: PSYCHOTIC DISORDER
  10. QUETIAPINE [Interacting]
     Indication: PSYCHOTIC DISORDER

REACTIONS (2)
  - DEPRESSION [None]
  - DRUG INTERACTION [None]
